FAERS Safety Report 8340770-3 (Version None)
Quarter: 2012Q2

REPORT INFORMATION
  Report Type: 
  Country: None (occurrence: None)
  Receive Date: 20120507
  Receipt Date: 20120425
  Transmission Date: 20120825
  Serious: Yes (Other)
  Sender: FDA-Public Use
  Company Number: US-BIOGENIDEC-2012BI014438

PATIENT
  Age: 59 Year
  Sex: Female
  Weight: 68 kg

DRUGS (9)
  1. ADDERALL 5 [Concomitant]
  2. LASIX [Concomitant]
  3. CYTOMEL [Concomitant]
  4. IBUPROFEN TABLETS [Concomitant]
  5. SYNTHROID [Concomitant]
  6. VITAMIN D [Concomitant]
  7. PROZAC [Concomitant]
  8. MAGNESIUM [Concomitant]
  9. TYSABRI [Suspect]
     Indication: MULTIPLE SCLEROSIS
     Route: 042
     Dates: start: 20070403, end: 20120409

REACTIONS (5)
  - DYSGRAPHIA [None]
  - PROGRESSIVE MULTIFOCAL LEUKOENCEPHALOPATHY [None]
  - VERTIGO [None]
  - COGNITIVE DISORDER [None]
  - PARAESTHESIA [None]
